FAERS Safety Report 18752023 (Version 1)
Quarter: 2021Q1

REPORT INFORMATION
  Report Type: Spontaneous
  Country: US (occurrence: US)
  Receive Date: 20210118
  Receipt Date: 20210118
  Transmission Date: 20210419
  Serious: No
  Sender: FDA-Public Use
  Company Number: US-TEVA-2021-US-1870904

PATIENT
  Age: 70 Year
  Sex: Male

DRUGS (8)
  1. HCTZ/VALSARTAN [Concomitant]
     Active Substance: HYDROCHLOROTHIAZIDE\VALSARTAN
     Dosage: HCTZ?12.5/ VALSARTAN 80MG BY MOUTH ONCE A DAY
     Route: 048
  2. FLUNISOLIDE. [Concomitant]
     Active Substance: FLUNISOLIDE
     Dosage: 0.025PERCENT 200D NASAL INH SPRAY, 2 SPRAYS OF ACTIVE 25MCG/SPRAY IN EACH NOSTRIL 2 TIMES A DAY
     Route: 065
  3. ACETAMINOPHEN. [Concomitant]
     Active Substance: ACETAMINOPHEN
     Indication: ARTHRITIS
     Dosage: 1000 MILLIGRAM DAILY; AS NEEDED
     Route: 048
  4. DESONIDE 0.05 PERCENT CREAM [Concomitant]
     Dosage: APPLY LIGHTLY TO AFFECTED AREA
     Route: 061
  5. KETOCONAZOLE. [Concomitant]
     Active Substance: KETOCONAZOLE
     Dosage: 2PERCENT SHAMPOO ON AFFECTED AREA THREE TIMES A WEEK WASH, SCALP LEAVE ON FOR 10?15 MIN
  6. LORATADINE. [Suspect]
     Active Substance: LORATADINE
     Indication: RHINITIS ALLERGIC
     Route: 065
  7. LOVASTATIN. [Concomitant]
     Active Substance: LOVASTATIN
     Indication: BLOOD CHOLESTEROL
     Dosage: ONE HALF TABLET BY MOUTH EVERY ACTIVE EVENING
     Route: 048
  8. PSYLLIUM/DEXTROSE [Concomitant]
     Dosage: 50 PERCENT/50 PERCENT ? BY MOUTH ONCE A DAY DISSOLVE IN 8 OUNCES OF WATER
     Route: 048

REACTIONS (1)
  - Drug ineffective [Unknown]

NARRATIVE: CASE EVENT DATE: 2011
